FAERS Safety Report 25578998 (Version 3)
Quarter: 2025Q3

REPORT INFORMATION
  Report Type: Spontaneous
  Country: US (occurrence: US)
  Receive Date: 20250718
  Receipt Date: 20250731
  Transmission Date: 20251021
  Serious: Yes (Death, Other)
  Sender: BEIGENE
  Company Number: US-BEIGENE-BGN-2025-011774

PATIENT
  Age: 86 Year

DRUGS (3)
  1. BRUKINSA [Suspect]
     Active Substance: ZANUBRUTINIB
     Indication: Chronic lymphocytic leukaemia
     Dosage: 80 MILLIGRAM, BID
  2. PREDNISONE [Concomitant]
     Active Substance: PREDNISONE
  3. PEPCID [Concomitant]
     Active Substance: FAMOTIDINE

REACTIONS (5)
  - Pulse absent [Fatal]
  - Syncope [Unknown]
  - Dizziness [Unknown]
  - Head injury [Unknown]
  - Chest pain [Unknown]
